FAERS Safety Report 7220137-1 (Version None)
Quarter: 2011Q1

REPORT INFORMATION
  Report Type: 
  Country: None (occurrence: None)
  Receive Date: 20110111
  Receipt Date: 20110104
  Transmission Date: 20110831
  Serious: Yes (Other)
  Sender: FDA-Public Use
  Company Number: US-JNJFOC-20101007085

PATIENT
  Sex: Male
  Weight: 71.67 kg

DRUGS (4)
  1. ASACOL [Concomitant]
     Indication: COLITIS ULCERATIVE
  2. REMICADE [Suspect]
     Dosage: RECEIVED 3 DOSES
     Route: 042
  3. REMICADE [Suspect]
     Dosage: 1 INFUSION ON AN UNSPECIFIED DATE
     Route: 042
  4. REMICADE [Suspect]
     Indication: COLITIS ULCERATIVE
     Route: 042

REACTIONS (1)
  - ACUTE PULMONARY HISTOPLASMOSIS [None]
